FAERS Safety Report 19375666 (Version 1)
Quarter: 2021Q2

REPORT INFORMATION
  Report Type: Spontaneous
  Country: US (occurrence: US)
  Receive Date: 20210605
  Receipt Date: 20210605
  Transmission Date: 20210717
  Serious: Yes (Hospitalization)
  Sender: FDA-Public Use
  Company Number: US-AUROBINDO-AUR-APL-2021-022849

PATIENT
  Age: 53 Year
  Sex: Male

DRUGS (45)
  1. DEXAMETHASONE. [Suspect]
     Active Substance: DEXAMETHASONE
     Indication: SUNCT SYNDROME
     Dosage: UNK
     Route: 065
  2. ELETRIPTAN. [Suspect]
     Active Substance: ELETRIPTAN
     Indication: SUNCT SYNDROME
     Dosage: UNK
     Route: 065
  3. DIHYDROERGOTAMINE [Suspect]
     Active Substance: DIHYDROERGOTAMINE
     Indication: SUNCT SYNDROME
     Dosage: UNK
     Route: 065
  4. MYOBLOC [Suspect]
     Active Substance: RIMABOTULINUMTOXINB
     Indication: SUNCT SYNDROME
     Dosage: UNK
     Route: 065
  5. PREDNISONE. [Suspect]
     Active Substance: PREDNISONE
     Indication: SUNCT SYNDROME
     Dosage: UNK
     Route: 065
  6. ESCITALOPRAM [Suspect]
     Active Substance: ESCITALOPRAM OXALATE
     Indication: SUNCT SYNDROME
     Dosage: UNK
     Route: 065
  7. KETAMINE HYDROCHLORIDE. [Suspect]
     Active Substance: KETAMINE HYDROCHLORIDE
     Indication: SUNCT SYNDROME
     Dosage: UNK
     Route: 065
  8. LORAZEPAM. [Suspect]
     Active Substance: LORAZEPAM
     Indication: SUNCT SYNDROME
     Dosage: UNK
     Route: 065
  9. OXYMORPHONE [Suspect]
     Active Substance: OXYMORPHONE
     Indication: SUNCT SYNDROME
     Dosage: UNK
     Route: 065
  10. LITHIUM. [Suspect]
     Active Substance: LITHIUM
     Indication: SUNCT SYNDROME
     Dosage: UNK
     Route: 065
  11. MORPHINE [Suspect]
     Active Substance: MORPHINE
     Indication: SUNCT SYNDROME
     Dosage: UNK
     Route: 065
  12. OXYCONTIN [Suspect]
     Active Substance: OXYCODONE HYDROCHLORIDE
     Indication: SUNCT SYNDROME
     Dosage: UNK
     Route: 065
  13. DIVALPROEX [Suspect]
     Active Substance: DIVALPROEX SODIUM
     Indication: SUNCT SYNDROME
     Dosage: UNK
     Route: 065
  14. HYDROMORPHONE [Suspect]
     Active Substance: HYDROMORPHONE
     Indication: SUNCT SYNDROME
     Dosage: 4 MILLIGRAM AS NEEDED
     Route: 065
  15. PREGABALIN. [Suspect]
     Active Substance: PREGABALIN
     Indication: SUNCT SYNDROME
     Dosage: UNK
     Route: 065
  16. CELECOXIB. [Suspect]
     Active Substance: CELECOXIB
     Indication: SUNCT SYNDROME
     Dosage: UNK
     Route: 065
  17. DICLOFENAC (OTC) [Suspect]
     Active Substance: DICLOFENAC
     Indication: SUNCT SYNDROME
     Dosage: UNK
     Route: 065
  18. LIDOCAINE. [Suspect]
     Active Substance: LIDOCAINE
     Indication: SUNCT SYNDROME
     Dosage: UNK
     Route: 042
  19. OXYCODONE [Suspect]
     Active Substance: OXYCODONE
     Indication: SUNCT SYNDROME
     Dosage: UNK
     Route: 065
  20. ZOLMITRIPTAN. [Suspect]
     Active Substance: ZOLMITRIPTAN
     Indication: SUNCT SYNDROME
     Dosage: UNK
     Route: 065
  21. BACLOFEN. [Suspect]
     Active Substance: BACLOFEN
     Indication: SUNCT SYNDROME
     Dosage: UNK
     Route: 065
  22. DEXTROPROPOXYPHENE [Suspect]
     Active Substance: PROPOXYPHENE HYDROCHLORIDE
     Indication: SUNCT SYNDROME
     Dosage: UNK
     Route: 065
  23. OXCARBAZEPINE. [Suspect]
     Active Substance: OXCARBAZEPINE
     Indication: SUNCT SYNDROME
     Dosage: UNK
     Route: 065
  24. TOPIRAMATE. [Suspect]
     Active Substance: TOPIRAMATE
     Indication: SUNCT SYNDROME
     Dosage: UNK
     Route: 065
  25. CLOMIPHENE [Suspect]
     Active Substance: CLOMIPHENE
     Indication: SUNCT SYNDROME
     Dosage: UNK
     Route: 065
  26. FENTANYL. [Suspect]
     Active Substance: FENTANYL
     Indication: SUNCT SYNDROME
     Dosage: 50 MCG, ONCE A DAY
     Route: 065
  27. MAGNESIUM [Suspect]
     Active Substance: MAGNESIUM
     Indication: SUNCT SYNDROME
     Dosage: UNK
     Route: 065
  28. PROCHLORPERAZINE. [Suspect]
     Active Substance: PROCHLORPERAZINE
     Indication: SUNCT SYNDROME
     Dosage: UNK
     Route: 065
  29. ONDANSETRON [Suspect]
     Active Substance: ONDANSETRON
     Indication: SUNCT SYNDROME
     Dosage: UNK
     Route: 065
  30. SUMATRIPTAN. [Suspect]
     Active Substance: SUMATRIPTAN
     Indication: SUNCT SYNDROME
     Dosage: UNK
     Route: 065
  31. CARBAMAZEPINE. [Suspect]
     Active Substance: CARBAMAZEPINE
     Indication: SUNCT SYNDROME
     Dosage: UNK
     Route: 065
  32. HYDROCHLOROTHIAZIDE. [Suspect]
     Active Substance: HYDROCHLOROTHIAZIDE
     Indication: SUNCT SYNDROME
     Dosage: UNK
     Route: 065
  33. LAMOTRIGINE. [Suspect]
     Active Substance: LAMOTRIGINE
     Indication: SUNCT SYNDROME
     Dosage: UNK
     Route: 065
  34. BOTOX [Suspect]
     Active Substance: ONABOTULINUMTOXINA
     Indication: SUNCT SYNDROME
     Dosage: UNK
     Route: 065
  35. DIAZEPAM. [Suspect]
     Active Substance: DIAZEPAM
     Indication: SUNCT SYNDROME
     Dosage: UNK
     Route: 065
  36. PROPRANOLOL [Suspect]
     Active Substance: PROPRANOLOL HYDROCHLORIDE
     Indication: SUNCT SYNDROME
     Dosage: UNK
     Route: 065
  37. GABAPENTIN. [Suspect]
     Active Substance: GABAPENTIN
     Indication: SUNCT SYNDROME
     Dosage: UNK
     Route: 065
  38. QUETIAPINE. [Suspect]
     Active Substance: QUETIAPINE
     Indication: SUNCT SYNDROME
     Dosage: UNK
     Route: 065
  39. VENLAFAXINE [Suspect]
     Active Substance: VENLAFAXINE HYDROCHLORIDE
     Indication: SUNCT SYNDROME
     Dosage: 75 MILLIGRAM, ONCE A DAY
     Route: 065
  40. VERAPAMIL HYDROCHLORIDE. [Suspect]
     Active Substance: VERAPAMIL HYDROCHLORIDE
     Indication: SUNCT SYNDROME
     Dosage: UNK
     Route: 065
  41. ZONISAMIDE. [Suspect]
     Active Substance: ZONISAMIDE
     Indication: SUNCT SYNDROME
     Dosage: UNK
     Route: 065
  42. AMITRIPTYLINE [Suspect]
     Active Substance: AMITRIPTYLINE
     Indication: SUNCT SYNDROME
     Dosage: UNK
     Route: 065
  43. INDOMETHACIN. [Suspect]
     Active Substance: INDOMETHACIN
     Indication: SUNCT SYNDROME
     Dosage: UNK
     Route: 065
  44. LACOSAMIDE. [Suspect]
     Active Substance: LACOSAMIDE
     Indication: SUNCT SYNDROME
     Dosage: UNK
     Route: 065
  45. MELATONIN [Suspect]
     Active Substance: MELATONIN
     Indication: SUNCT SYNDROME
     Dosage: UNK
     Route: 065

REACTIONS (2)
  - Product use in unapproved indication [Unknown]
  - Drug ineffective [Unknown]
